FAERS Safety Report 5964182-2 (Version None)
Quarter: 2008Q4

REPORT INFORMATION
  Report Type: 
  Country: None (occurrence: None)
  Receive Date: 20081124
  Receipt Date: 20081117
  Transmission Date: 20090506
  Serious: Yes (Congenital Anomaly)
  Sender: FDA-Public Use
  Company Number: FR-ABBOTT-08P-056-0481385-00

PATIENT
  Sex: Male
  Weight: 35 kg

DRUGS (1)
  1. DEPAKENE [Suspect]
     Indication: FAMILIAL RISK FACTOR
     Route: 064

REACTIONS (2)
  - DRUG EXPOSURE DURING PREGNANCY [None]
  - LEARNING DISORDER [None]
